FAERS Safety Report 10190498 (Version 1)
Quarter: 2014Q2

REPORT INFORMATION
  Report Type: Spontaneous
  Country: US (occurrence: US)
  Receive Date: 20140522
  Receipt Date: 20140522
  Transmission Date: 20141212
  Serious: Yes (Other)
  Sender: FDA-Public Use
  Company Number: US-SA-2014SA011094

PATIENT
  Sex: 0

DRUGS (5)
  1. OXALIPLATIN [Suspect]
     Indication: COLON CANCER
     Dosage: 1 IN TWO WEEKS
     Route: 042
  2. FOLINIC ACID [Suspect]
     Indication: COLON CANCER
     Dosage: 1 IN 2 WEEKS
     Route: 042
  3. FLUOROURACIL [Suspect]
     Indication: COLON CANCER
     Route: 042
  4. BEVACIZUMAB [Suspect]
     Indication: COLON CANCER
     Dosage: 1 IN 2 WEEKS
     Route: 042
  5. IRINOTECAN [Suspect]
     Indication: COLON CANCER
     Route: 042

REACTIONS (1)
  - Fatigue [Unknown]
